FAERS Safety Report 6274724-8 (Version None)
Quarter: 2009Q3

REPORT INFORMATION
  Report Type: 
  Country: None (occurrence: None)
  Receive Date: 20090721
  Receipt Date: 20090707
  Transmission Date: 20100115
  Serious: Yes (Life-Threatening, Hospitalization)
  Sender: FDA-Public Use
  Company Number: IN-RANBAXY-2009RR-25497

PATIENT
  Age: 26 Year
  Sex: Female

DRUGS (2)
  1. FLUCONAZOLE [Suspect]
     Indication: CANDIDIASIS
     Dosage: 200 MG, QD
     Route: 048
  2. FLUCONAZOLE [Suspect]
     Indication: CANDIDIASIS
     Route: 042

REACTIONS (8)
  - BLOOD SODIUM INCREASED [None]
  - CARDIAC ARREST [None]
  - ELECTROMECHANICAL DISSOCIATION [None]
  - EXTRASYSTOLES [None]
  - HYPOCALCAEMIA [None]
  - HYPOKALAEMIA [None]
  - TORSADE DE POINTES [None]
  - VENTRICULAR ARRHYTHMIA [None]
